FAERS Safety Report 20608873 (Version 1)
Quarter: 2022Q1

REPORT INFORMATION
  Report Type: Report from Study
  Country: US (occurrence: US)
  Receive Date: 20220317
  Receipt Date: 20220317
  Transmission Date: 20220423
  Serious: Yes (Hospitalization)
  Sender: FDA-Public Use
  Company Number: US-PFIZER INC-202200169552

PATIENT
  Age: 32 Year
  Sex: Female
  Weight: 50 kg

DRUGS (4)
  1. NIRMATRELVIR [Suspect]
     Active Substance: NIRMATRELVIR
     Indication: COVID-19
     Dosage: UNK, 2X/DAY (Q12 H FOR 5 DAYS)
     Route: 048
     Dates: start: 20211106, end: 20211110
  2. PLACEBO [Suspect]
     Active Substance: UNSPECIFIED INGREDIENT
     Indication: COVID-19
     Dosage: UNK, 2X/DAY (Q12 H FOR 5 DAYS)
     Route: 048
     Dates: start: 20211106, end: 20211110
  3. PLACEBO [Suspect]
     Active Substance: UNSPECIFIED INGREDIENT
     Indication: COVID-19
     Dosage: UNK, 2X/DAY (Q12 H FOR 5 DAYS)
     Route: 048
     Dates: start: 20211106, end: 20211110
  4. RITONAVIR [Suspect]
     Active Substance: RITONAVIR
     Indication: COVID-19
     Dosage: UNK, 2X/DAY (Q12 H FOR 5 DAYS)
     Route: 048
     Dates: start: 20211106, end: 20211110

REACTIONS (1)
  - Multiple sclerosis relapse [Recovering/Resolving]

NARRATIVE: CASE EVENT DATE: 20220123
